FAERS Safety Report 8538349-3 (Version None)
Quarter: 2012Q3

REPORT INFORMATION
  Report Type: 
  Country: None (occurrence: None)
  Receive Date: 20120726
  Receipt Date: 20120724
  Transmission Date: 20120928
  Serious: No
  Sender: FDA-Public Use
  Company Number: US-PFIZER INC-2012099630

PATIENT
  Sex: Male
  Weight: 70 kg

DRUGS (12)
  1. SUTENT [Suspect]
     Dosage: 37.5 MG, UNK
     Dates: start: 20120613
  2. DIOVAN [Concomitant]
     Indication: BLOOD PRESSURE
     Dosage: 320 MG, 1X/DAY, ONCE A DAY IN THE MORNING
     Route: 048
  3. ASPIRIN [Concomitant]
     Indication: CARDIAC DISORDER
     Dosage: 81 MG, 1X/DAY
     Route: 048
  4. DILTIAZEM HYDROCHLORIDE [Concomitant]
     Indication: BLOOD PRESSURE
     Dosage: 240 MG, 1X/DAY IN THE EVENING
     Route: 048
  5. COMBIGAN [Concomitant]
     Dosage: 1 DF (1 DROP), 1X/DAY
     Route: 047
  6. VITAMIN B6 [Concomitant]
     Dosage: 100 MG, UNK
  7. MULTI-VITAMINS [Concomitant]
     Indication: BLOOD PRESSURE
     Dosage: 1 DF, 1X/DAY IN THE MORNING
     Route: 048
  8. SUTENT [Suspect]
     Dosage: 12.5 MG, 3X/DAY
     Dates: start: 20110805, end: 20120516
  9. SUTENT [Suspect]
     Dosage: 12.5 MG, UNK
     Dates: start: 20120531
  10. ANACIN [Concomitant]
     Indication: HEADACHE
     Dosage: 1 DF, AS NEEDED
     Route: 048
  11. PREDAIR FORTE [Concomitant]
     Dosage: 1 DF (1 DROP), 1X/DAY
     Route: 047
  12. SUTENT [Suspect]
     Indication: GASTROINTESTINAL STROMAL TUMOUR
     Dosage: 37.5 MG, 1X/DAY
     Route: 048
     Dates: start: 20110701, end: 20120516

REACTIONS (25)
  - MUSCULOSKELETAL DISCOMFORT [None]
  - PRURITUS [None]
  - COUGH [None]
  - SKIN DISORDER [None]
  - WHITE BLOOD CELL COUNT ABNORMAL [None]
  - VOMITING [None]
  - STOMATITIS [None]
  - HYPERKERATOSIS [None]
  - BLOOD PRESSURE FLUCTUATION [None]
  - WEIGHT DECREASED [None]
  - DYSGEUSIA [None]
  - DIARRHOEA [None]
  - BODY HEIGHT DECREASED [None]
  - DYSPNOEA [None]
  - CHEST DISCOMFORT [None]
  - NAUSEA [None]
  - CHEST PAIN [None]
  - BONE PAIN [None]
  - PALMAR-PLANTAR ERYTHRODYSAESTHESIA SYNDROME [None]
  - PAIN IN EXTREMITY [None]
  - AGEUSIA [None]
  - ASTHENIA [None]
  - DECREASED APPETITE [None]
  - DYSGRAPHIA [None]
  - FATIGUE [None]
